FAERS Safety Report 7491239-X (Version None)
Quarter: 2011Q2

REPORT INFORMATION
  Report Type: 
  Country: None (occurrence: None)
  Receive Date: 20110519
  Receipt Date: 20110510
  Transmission Date: 20111010
  Serious: Yes (Hospitalization)
  Sender: FDA-Public Use
  Company Number: A0829274A

PATIENT
  Sex: Male
  Weight: 86.4 kg

DRUGS (6)
  1. COMBIVENT [Concomitant]
  2. CARDIZEM [Concomitant]
  3. GLYBURIDE [Concomitant]
  4. AZMACORT [Concomitant]
  5. AVANDIA [Suspect]
     Indication: DIABETES MELLITUS
     Route: 048
  6. GLUCOPHAGE XR [Concomitant]

REACTIONS (3)
  - CORONARY ARTERY DISEASE [None]
  - MYOCARDIAL INFARCTION [None]
  - CARDIAC FAILURE CONGESTIVE [None]
